FAERS Safety Report 6575820-8 (Version None)
Quarter: 2010Q1

REPORT INFORMATION
  Report Type: 
  Country: None (occurrence: None)
  Receive Date: 20100208
  Receipt Date: 20100208
  Transmission Date: 20100710
  Serious: Yes (Other)
  Sender: FDA-Public Use
  Company Number: None

PATIENT
  Age: 42 Year
  Sex: Female
  Weight: 108.8633 kg

DRUGS (1)
  1. LANSOPRAZOLE [Suspect]
     Indication: GASTROOESOPHAGEAL REFLUX DISEASE
     Dosage: 30MG 1-2 TIMES DAILY PO
     Route: 048
     Dates: start: 20100201, end: 20100206

REACTIONS (4)
  - DRUG INEFFECTIVE [None]
  - HYPOPHAGIA [None]
  - INSOMNIA [None]
  - PRODUCT SUBSTITUTION ISSUE [None]
